FAERS Safety Report 4592110-3 (Version None)
Quarter: 2005Q1

REPORT INFORMATION
  Report Type: 
  Country: None (occurrence: None)
  Receive Date: 20050125
  Receipt Date: 20040813
  Transmission Date: 20050727
  Serious: No
  Sender: FDA-Public Use
  Company Number: USA040875558

PATIENT
  Age: 53 Year
  Sex: Female

DRUGS (4)
  1. FORTEO [Suspect]
     Indication: OSTEOPOROSIS
     Dates: start: 20040401
  2. DARVOCET-N 100 [Concomitant]
  3. ZANAFLEX [Concomitant]
  4. BEXTRA [Concomitant]

REACTIONS (2)
  - BONE PAIN [None]
  - PAIN [None]
